FAERS Safety Report 10336697 (Version 1)
Quarter: 2014Q3

REPORT INFORMATION
  Report Type: Spontaneous
  Country: US (occurrence: US)
  Receive Date: 20140723
  Receipt Date: 20140723
  Transmission Date: 20150326
  Serious: No
  Sender: FDA-Public Use
  Company Number: US-UNITED THERAPEUTICS-UNT-2014-000609

PATIENT
  Age: 32 Year
  Sex: Female

DRUGS (1)
  1. REMODULIN [Suspect]
     Active Substance: TREPROSTINIL
     Indication: PULMONARY ARTERIAL HYPERTENSION
     Dosage: .010 ?G/KG/MIN, CONTINUING
     Route: 041
     Dates: start: 20140508

REACTIONS (7)
  - Back pain [Unknown]
  - Hypoaesthesia [Unknown]
  - Nausea [Unknown]
  - Headache [Unknown]
  - Pain in jaw [Unknown]
  - Paraesthesia [Unknown]
  - Neuropathy peripheral [Unknown]

NARRATIVE: CASE EVENT DATE: 201405
